FAERS Safety Report 8769728 (Version 2)
Quarter: 2012Q4

REPORT INFORMATION
  Report Type: 
  Country: JP (occurrence: JP)
  Receive Date: 20120905
  Receipt Date: 20121125
  Transmission Date: 20130627
  Serious: Yes (Hospitalization)
  Sender: FDA-Public Use
  Company Number: JP-009507513-2012SP017380

PATIENT
  Age: 50 Year
  Sex: Male
  Weight: 75 kg

DRUGS (12)
  1. PEGINTERFERON ALFA-2B [Suspect]
     Indication: CHRONIC HEPATITIS C
     Dosage: 1.5 Microgram per kilogram, qw
     Route: 058
     Dates: start: 20120203, end: 20120712
  2. REBETOL [Suspect]
     Indication: CHRONIC HEPATITIS C
     Dosage: 800 mg, QD, cumulative dose: 1600 mg
     Route: 048
     Dates: start: 20120203, end: 20120307
  3. REBETOL [Suspect]
     Dosage: 600 mg, QD
     Route: 048
     Dates: start: 20120308, end: 20120313
  4. REBETOL [Suspect]
     Dosage: 400 mg, QD
     Route: 048
     Dates: start: 20120314, end: 20120501
  5. REBETOL [Suspect]
     Dosage: 600 mg qd
     Route: 048
     Dates: start: 20120502, end: 20120523
  6. REBETOL [Suspect]
     Dosage: 800 mg qd
     Route: 048
     Dates: start: 20120524, end: 20120606
  7. REBETOL [Suspect]
     Dosage: 600 mg qd
     Route: 048
     Dates: start: 20120607, end: 20120619
  8. REBETOL [Suspect]
     Dosage: UNK
  9. TELAVIC [Suspect]
     Indication: CHRONIC HEPATITIS C
     Dosage: 2250 mg, QD
     Route: 048
     Dates: start: 20120203, end: 20120306
  10. TELAVIC [Suspect]
     Dosage: 1500 mg, QD
     Route: 048
     Dates: start: 20120307, end: 20120426
  11. TELAVIC [Suspect]
     Dosage: UNK
     Route: 048
  12. DICLOFENAC [Concomitant]
     Indication: PYREXIA
     Dosage: 50 mg, QD
     Route: 054
     Dates: start: 20120204

REACTIONS (3)
  - Gastrointestinal disorder [Recovered/Resolved]
  - Malaise [Recovered/Resolved]
  - Malaise [Not Recovered/Not Resolved]
